FAERS Safety Report 17464220 (Version 3)
Quarter: 2020Q1

REPORT INFORMATION
  Report Type: Report from Study
  Country: US (occurrence: US)
  Receive Date: 20200226
  Receipt Date: 20200316
  Transmission Date: 20200409
  Serious: Yes (Hospitalization, Other)
  Sender: FDA-Public Use
  Company Number: US-B.I. PHARMACEUTICALS,INC./RIDGEFIELD-2019-BI-117997

PATIENT
  Age: 85 Year
  Sex: Male

DRUGS (1)
  1. OFEV [Suspect]
     Active Substance: NINTEDANIB
     Indication: IDIOPATHIC PULMONARY FIBROSIS
     Route: 048
     Dates: start: 20180910

REACTIONS (14)
  - Dehydration [Recovered/Resolved]
  - Haematuria [Unknown]
  - Neck pain [Not Recovered/Not Resolved]
  - Prostatomegaly [Unknown]
  - Nervousness [Not Recovered/Not Resolved]
  - Pulmonary haematoma [Unknown]
  - Agitation [Not Recovered/Not Resolved]
  - Cough [Not Recovered/Not Resolved]
  - Hip surgery [Not Recovered/Not Resolved]
  - Diarrhoea [Unknown]
  - Anxiety [Not Recovered/Not Resolved]
  - Sputum increased [Not Recovered/Not Resolved]
  - Dyspnoea [Not Recovered/Not Resolved]
  - Oxygen saturation decreased [Not Recovered/Not Resolved]

NARRATIVE: CASE EVENT DATE: 20191101
